FAERS Safety Report 18722045 (Version 1)
Quarter: 2021Q1

REPORT INFORMATION
  Report Type: Spontaneous
  Country: CA (occurrence: CA)
  Receive Date: 20210111
  Receipt Date: 20210111
  Transmission Date: 20210419
  Serious: Yes (Other)
  Sender: FDA-Public Use
  Company Number: CA-AUROBINDO-AUR-APL-2021-000972

PATIENT
  Age: 41 Year
  Sex: Female

DRUGS (2)
  1. MOXIFLOXACIN. [Suspect]
     Active Substance: MOXIFLOXACIN
     Indication: PNEUMONIA
     Dosage: UNK
     Route: 065
  2. IBUPROFEN. [Suspect]
     Active Substance: IBUPROFEN
     Indication: PRODUCT USED FOR UNKNOWN INDICATION
     Dosage: 400 DOSAGE FORM
     Route: 065

REACTIONS (5)
  - Bronchial hyperreactivity [Recovered/Resolved]
  - Cough [Recovered/Resolved]
  - Rash erythematous [Recovered/Resolved]
  - Respiratory disorder [Recovered/Resolved]
  - Flushing [Recovered/Resolved]
